FAERS Safety Report 4770610-0 (Version None)
Quarter: 2005Q3

REPORT INFORMATION
  Report Type: 
  Country: None (occurrence: None)
  Receive Date: 20050915
  Receipt Date: 20050907
  Transmission Date: 20060218
  Serious: Yes (Other)
  Sender: FDA-Public Use
  Company Number: GB-JNJFOC-20050901550

PATIENT
  Age: 19 Year
  Sex: Female

DRUGS (5)
  1. PARACETAMOL [Suspect]
     Route: 048
  2. PARACETAMOL [Suspect]
     Indication: DRUG USE FOR UNKNOWN INDICATION
     Dosage: ^C128 X 500MG^
     Route: 048
  3. PAROXETINE [Suspect]
     Indication: DRUG USE FOR UNKNOWN INDICATION
  4. NUROFEN [Suspect]
     Indication: DRUG USE FOR UNKNOWN INDICATION
  5. CIPRAMIL [Concomitant]

REACTIONS (4)
  - COMPLETED SUICIDE [None]
  - OVERDOSE [None]
  - SUICIDAL IDEATION [None]
  - SUICIDE ATTEMPT [None]
